FAERS Safety Report 19250628 (Version 11)
Quarter: 2025Q3

REPORT INFORMATION
  Report Type: Report from Study
  Country: US (occurrence: US)
  Receive Date: 20210512
  Receipt Date: 20250916
  Transmission Date: 20251021
  Serious: Yes (Hospitalization, Other)
  Sender: TAKEDA
  Company Number: US-TAKEDA-2020TUS010575

PATIENT
  Age: 59 Year
  Sex: Male
  Weight: 83 kg

DRUGS (23)
  1. PONATINIB [Suspect]
     Active Substance: PONATINIB
     Indication: Chronic myeloid leukaemia
     Dosage: 45 MILLIGRAM, QD
     Dates: start: 201912
  2. PONATINIB [Suspect]
     Active Substance: PONATINIB
     Dosage: 30 MILLIGRAM, QD
  3. PONATINIB [Suspect]
     Active Substance: PONATINIB
  4. PONATINIB [Suspect]
     Active Substance: PONATINIB
     Dosage: 15 MILLIGRAM, QD
  5. PONATINIB [Suspect]
     Active Substance: PONATINIB
     Dosage: 15 MILLIGRAM, QD
  6. PONATINIB [Suspect]
     Active Substance: PONATINIB
     Dosage: 30 MILLIGRAM, QD
  7. PONATINIB [Suspect]
     Active Substance: PONATINIB
     Dosage: 30 MILLIGRAM, QD
     Dates: start: 20230201
  8. PONATINIB [Suspect]
     Active Substance: PONATINIB
  9. ASPIRIN [Concomitant]
     Active Substance: ASPIRIN
  10. IBUPROFEN [Concomitant]
     Active Substance: IBUPROFEN
  11. ALLOPURINOL [Concomitant]
     Active Substance: ALLOPURINOL
  12. GABAPENTIN [Concomitant]
     Active Substance: GABAPENTIN
  13. PERCOCET [Concomitant]
     Active Substance: ACETAMINOPHEN\OXYCODONE HYDROCHLORIDE
     Indication: Pain
     Dosage: 40 MILLIGRAM, QID
  14. ATENOLOL [Concomitant]
     Active Substance: ATENOLOL
  15. AMLODIPINE BESYLATE [Concomitant]
     Active Substance: AMLODIPINE BESYLATE
  16. HYDROCHLOROTHIAZIDE [Concomitant]
     Active Substance: HYDROCHLOROTHIAZIDE
  17. LIFITEGRAST [Concomitant]
     Active Substance: LIFITEGRAST
  18. PANTOPRAZOLE SODIUM [Concomitant]
     Active Substance: PANTOPRAZOLE SODIUM
  19. SUCRALFATE [Concomitant]
     Active Substance: SUCRALFATE
  20. ZOFRAN [Concomitant]
     Active Substance: ONDANSETRON HYDROCHLORIDE
  21. FINASTERIDE [Concomitant]
     Active Substance: FINASTERIDE
     Indication: Prostatic disorder
  22. XANAX [Concomitant]
     Active Substance: ALPRAZOLAM
     Indication: Anxiety
  23. CLONAZEPAM [Concomitant]
     Active Substance: CLONAZEPAM
     Indication: Anxiety

REACTIONS (20)
  - Pneumonia [Recovered/Resolved]
  - Rib fracture [Recovering/Resolving]
  - Neuropathy peripheral [Unknown]
  - Helicobacter infection [Unknown]
  - Mastication disorder [Not Recovered/Not Resolved]
  - Red blood cell count decreased [Unknown]
  - White blood cell count abnormal [Unknown]
  - Sleep deficit [Unknown]
  - Hypoacusis [Unknown]
  - Memory impairment [Unknown]
  - Product dose omission issue [Unknown]
  - Gait disturbance [Unknown]
  - Amnesia [Unknown]
  - Blood pressure increased [Unknown]
  - Gastrooesophageal reflux disease [Unknown]
  - Malaise [Not Recovered/Not Resolved]
  - Dry skin [Unknown]
  - Pruritus [Unknown]
  - Dry eye [Unknown]
  - Pain in extremity [Unknown]

NARRATIVE: CASE EVENT DATE: 20201012
